FAERS Safety Report 5271202-X (Version None)
Quarter: 2007Q1

REPORT INFORMATION
  Report Type: 
  Country: None (occurrence: None)
  Receive Date: 20070315
  Receipt Date: 20070301
  Transmission Date: 20070707
  Serious: Yes (Hospitalization)
  Sender: FDA-Public Use
  Company Number: 235332

PATIENT
  Age: 71 Year
  Sex: Male
  Weight: 65 kg

DRUGS (14)
  1. HERCEPTIN [Suspect]
     Indication: GASTRIC CANCER
     Dosage: 520 MG, Q3W, INTRAVENOUS
     Route: 042
     Dates: start: 20061208
  2. CAPECITABINE(CAPECITABINE) [Suspect]
     Indication: GASTRIC CANCER
     Dosage: 3300 MG, QD, ORAL
     Route: 048
     Dates: start: 20061208
  3. CISPLATIN [Suspect]
     Indication: GASTRIC CANCER
     Dosage: 136 MG, Q3W, INTRAVENOUS
     Route: 042
     Dates: start: 20061208
  4. FERROUS CITRATE (SODIUM FERROUS CITRATE) [Concomitant]
  5. ZOLPIDEM TARTRATE [Concomitant]
  6. CONCOMITANT DRUG (GENERIC COMPONENT (S) NOT KNOWN [Concomitant]
  7. DIFLUCORTOLONE VALERATE (DIFLUCORTOLONE VALERATE) [Concomitant]
  8. DICYCLOMINE HCL (DICYCLOMINE  HYDROCHLORIDE) [Concomitant]
  9. CETRAXATE HYDROCHLORIDE (CETRAXATE HYDROCHLORIDE) [Concomitant]
  10. DOMPERIDON (DOMPERIDONE) [Concomitant]
  11. ENALAPRIL MALEATE [Concomitant]
  12. TOCOPHEROL NICOTINATE (TOCOPHEROL NICOTINATE) [Concomitant]
  13. SODIUM FERROUS CITRATE (SODIUM FERROUS CITRATE) [Concomitant]
  14. ZOLPIDEM TARTRATE [Concomitant]

REACTIONS (9)
  - ARTHRITIS [None]
  - DISEASE PROGRESSION [None]
  - GASTROINTESTINAL HAEMORRHAGE [None]
  - GOUT [None]
  - HEPATIC LESION [None]
  - NEUTROPHIL COUNT INCREASED [None]
  - PYREXIA [None]
  - RENAL IMPAIRMENT [None]
  - WHITE BLOOD CELL COUNT INCREASED [None]
